FAERS Safety Report 8030363-X (Version None)
Quarter: 2012Q1

REPORT INFORMATION
  Report Type: 
  Country: None (occurrence: None)
  Receive Date: 20120109
  Receipt Date: 20120109
  Transmission Date: 20120608
  Serious: Yes (Life-Threatening, Hospitalization)
  Sender: FDA-Public Use
  Company Number: None

PATIENT
  Age: 66 Year
  Sex: Female
  Weight: 112 kg

DRUGS (2)
  1. ENOXAPARIN [Concomitant]
     Indication: ATRIAL FIBRILLATION
     Dosage: 120MG
     Route: 058
     Dates: start: 20111211, end: 20111213
  2. RIVAROXABAN [Suspect]
     Indication: ATRIAL FIBRILLATION
     Dosage: 15MG
     Route: 048
     Dates: start: 20111214, end: 20111214

REACTIONS (3)
  - RETROPERITONEAL HAEMATOMA [None]
  - RENAL FAILURE ACUTE [None]
  - HYPOVOLAEMIA [None]
